FAERS Safety Report 17093452 (Version 1)
Quarter: 2019Q4

REPORT INFORMATION
  Report Type: Report from Study
  Country: US (occurrence: US)
  Receive Date: 20191129
  Receipt Date: 20191129
  Transmission Date: 20200122
  Serious: Yes (Other)
  Sender: FDA-Public Use
  Company Number: NVSC2019US051623

PATIENT
  Sex: Female

DRUGS (1)
  1. COSENTYX [Suspect]
     Active Substance: SECUKINUMAB
     Indication: PRODUCT USED FOR UNKNOWN INDICATION
     Dosage: UNK
     Route: 065
     Dates: start: 20190911

REACTIONS (4)
  - Osteoarthritis [Recovering/Resolving]
  - Eye haemorrhage [Recovered/Resolved]
  - Pruritus [Recovering/Resolving]
  - Pain [Recovering/Resolving]
